FAERS Safety Report 25884177 (Version 2)
Quarter: 2025Q4

REPORT INFORMATION
  Report Type: Report from Study
  Country: CA (occurrence: CA)
  Receive Date: 20251006
  Receipt Date: 20251022
  Transmission Date: 20260118
  Serious: Yes (Death)
  Sender: TEVA
  Company Number: CA-TEVA-VS-3378612

PATIENT

DRUGS (3)
  1. BENDAMUSTINE [Suspect]
     Active Substance: BENDAMUSTINE
     Indication: Nodular lymphocyte predominant Hodgkin lymphoma
     Dosage: ON DAYS 1 AND 2 OF CYCLES 1-6; IN 28-DAY TREATMENT CYCLES
     Route: 065
  2. RITUXIMAB [Suspect]
     Active Substance: RITUXIMAB
     Indication: Nodular lymphocyte predominant Hodgkin lymphoma
     Dosage: ON DAY 1 OF CYCLES 2-6; IN 28-DAY TREATMENT CYCLES
     Route: 058
  3. RITUXIMAB [Suspect]
     Active Substance: RITUXIMAB
     Indication: Nodular lymphocyte predominant Hodgkin lymphoma
     Dosage: ON DAY 1 OF CYCLE 1; IN 28-DAY TREATMENT CYCLES
     Route: 065

REACTIONS (1)
  - Acute myeloid leukaemia [Fatal]
